FAERS Safety Report 7482545-3 (Version None)
Quarter: 2011Q2

REPORT INFORMATION
  Report Type: 
  Country: None (occurrence: None)
  Receive Date: 20110516
  Receipt Date: 20110503
  Transmission Date: 20111010
  Serious: Yes (Hospitalization, Other)
  Sender: FDA-Public Use
  Company Number: DE-UCBSA-031134

PATIENT
  Sex: Male
  Weight: 60 kg

DRUGS (7)
  1. ZEBINIX [Suspect]
     Dosage: UP TITRATION
  2. KEPPRA [Suspect]
     Indication: EPILEPSY
     Dates: start: 20090101
  3. LAMOTRIGINE [Suspect]
     Indication: EPILEPSY
     Dates: start: 20100601, end: 20100901
  4. BACLOFEN [Concomitant]
     Indication: MUSCLE ATROPHY
  5. TURIXIN [Concomitant]
     Route: 045
  6. KEPPRA [Suspect]
  7. ZEBINIX [Suspect]
     Dosage: UNKNOWN DOSE

REACTIONS (5)
  - HYPONATRAEMIA [None]
  - THROMBOCYTOPENIA [None]
  - LEUKOPENIA [None]
  - PNEUMONIA STAPHYLOCOCCAL [None]
  - DYSPHAGIA [None]
